FAERS Safety Report 5587395-0 (Version None)
Quarter: 2008Q1

REPORT INFORMATION
  Report Type: 
  Country: None (occurrence: None)
  Receive Date: 20080110
  Receipt Date: 20071231
  Transmission Date: 20080703
  Serious: Yes (Hospitalization)
  Sender: FDA-Public Use
  Company Number: FR-ABBOTT-08P-056-0431999-00

PATIENT
  Sex: Female

DRUGS (6)
  1. DEPAKENE [Suspect]
     Indication: EPILEPSY
     Route: 048
     Dates: start: 20070912, end: 20071128
  2. LEVETIRACETAM [Suspect]
     Indication: EPILEPSY
     Route: 048
     Dates: start: 20070714
  3. METHYLPREDNISOLONE [Suspect]
     Indication: EPILEPSY
     Route: 048
     Dates: start: 20070714, end: 20071024
  4. TEMOZOLOMIDE [Suspect]
     Indication: GLIOBLASTOMA
     Route: 048
     Dates: start: 20070912, end: 20071024
  5. ONDANSETRON HYDROCHLORIDE [Suspect]
     Indication: NAUSEA
     Route: 048
     Dates: start: 20070912, end: 20071024
  6. AUGMENTIN '250' [Suspect]
     Indication: BRONCHITIS
     Route: 048
     Dates: start: 20071102, end: 20071102

REACTIONS (10)
  - ALANINE AMINOTRANSFERASE INCREASED [None]
  - ASPARTATE AMINOTRANSFERASE INCREASED [None]
  - BLOOD ALKALINE PHOSPHATASE INCREASED [None]
  - BLOOD BILIRUBIN INCREASED [None]
  - BRONCHITIS [None]
  - CHOLESTASIS [None]
  - GAMMA-GLUTAMYLTRANSFERASE INCREASED [None]
  - HEPATOMEGALY [None]
  - JAUNDICE [None]
  - LIVER DISORDER [None]
